FAERS Safety Report 7918214-2 (Version None)
Quarter: 2011Q4

REPORT INFORMATION
  Report Type: 
  Country: None (occurrence: None)
  Receive Date: 20111116
  Receipt Date: 20111108
  Transmission Date: 20120403
  Serious: Yes (Hospitalization)
  Sender: FDA-Public Use
  Company Number: US-GLAXOSMITHKLINE-A0882804A

PATIENT
  Age: 52 Year
  Sex: Male
  Weight: 98.6 kg

DRUGS (9)
  1. LIPITOR [Concomitant]
  2. LOPRESSOR [Concomitant]
  3. ACCUPRIL [Concomitant]
  4. IMDUR [Concomitant]
  5. AVANDIA [Suspect]
     Indication: TYPE 2 DIABETES MELLITUS
     Dosage: 4MG PER DAY
     Route: 048
     Dates: start: 20010601, end: 20090101
  6. LIPITOR [Concomitant]
  7. ASPIRIN [Concomitant]
  8. GLYBURIDE [Concomitant]
  9. WELCHOL [Concomitant]

REACTIONS (3)
  - WALLENBERG SYNDROME [None]
  - CORONARY ARTERY DISEASE [None]
  - MYOCARDIAL INFARCTION [None]
